FAERS Safety Report 9276595 (Version 2)
Quarter: 2013Q2

REPORT INFORMATION
  Report Type: Spontaneous
  Country: SG (occurrence: SG)
  Receive Date: 20130507
  Receipt Date: 20130530
  Transmission Date: 20140414
  Serious: Yes (Death)
  Sender: FDA-Public Use
  Company Number: SG-CELGENEUS-141-21880-13041814

PATIENT
  Age: 70 Year
  Sex: Female

DRUGS (20)
  1. REVLIMID [Suspect]
     Indication: PLASMA CELL MYELOMA
     Dosage: 10 MILLIGRAM
     Route: 048
     Dates: start: 20130321, end: 20130329
  2. REVLIMID [Suspect]
     Dosage: 15 MILLIGRAM
     Route: 048
     Dates: start: 20130412, end: 20130429
  3. DEXAMETHASONE [Concomitant]
     Indication: PLASMA CELL MYELOMA
     Dosage: 20 MILLIGRAM
     Route: 041
     Dates: start: 20130321, end: 20130419
  4. MADOPAR [Concomitant]
     Indication: PARKINSON^S DISEASE
     Route: 065
     Dates: end: 20130501
  5. MECOBALAMIN [Concomitant]
     Indication: PRODUCT USED FOR UNKNOWN INDICATION
     Route: 048
     Dates: start: 20121219, end: 20130419
  6. MIRTAZAPINE [Concomitant]
     Indication: DEPRESSION
     Route: 048
     Dates: start: 20130412, end: 20130501
  7. VALSARTAN [Concomitant]
     Indication: HYPERTENSION
     Route: 048
     Dates: end: 20130422
  8. GLIPIZIDE [Concomitant]
     Indication: DIABETES MELLITUS
     Route: 048
     Dates: start: 20130425, end: 20130501
  9. ESOMEPRAZOLE [Concomitant]
     Indication: PROPHYLAXIS
     Route: 048
     Dates: start: 20130405, end: 20130501
  10. CALCIUM [Concomitant]
     Indication: SUPPLEMENTATION THERAPY
     Route: 048
     Dates: start: 20130324, end: 20130422
  11. PARACETAMOL [Concomitant]
     Indication: SUPPLEMENTATION THERAPY
     Route: 065
     Dates: start: 20130320, end: 20130501
  12. MORPHINE [Concomitant]
     Indication: SUPPLEMENTATION THERAPY
     Dosage: 2.5MG-5MG
     Route: 048
     Dates: start: 20130227, end: 20130501
  13. FLEETENANA [Concomitant]
     Indication: CONSTIPATION
     Route: 065
  14. LACTULOSE [Concomitant]
     Indication: CONSTIPATION
     Route: 065
  15. FYBOGEL [Concomitant]
     Indication: CONSTIPATION
     Route: 065
  16. LAMIVUDINE [Concomitant]
     Indication: PROPHYLAXIS
     Route: 065
     Dates: start: 20130321, end: 20130501
  17. VELCADE [Concomitant]
     Indication: PRODUCT USED FOR UNKNOWN INDICATION
     Route: 058
     Dates: start: 20130321, end: 20130328
  18. BENZHEXOL [Concomitant]
     Indication: PRODUCT USED FOR UNKNOWN INDICATION
     Route: 065
     Dates: end: 20130501
  19. BISOPROLOL [Concomitant]
     Indication: MYOCARDIAL ISCHAEMIA
     Route: 065
     Dates: start: 20130302, end: 20130422
  20. DOMPERIDONE [Concomitant]
     Indication: PRODUCT USED FOR UNKNOWN INDICATION
     Route: 065
     Dates: start: 20130405, end: 20130501

REACTIONS (1)
  - Pneumonia [Fatal]
